FAERS Safety Report 6796246-8 (Version None)
Quarter: 2010Q2

REPORT INFORMATION
  Report Type: 
  Country: None (occurrence: None)
  Receive Date: 20100624
  Receipt Date: 20100624
  Transmission Date: 20101027
  Serious: Yes (Hospitalization)
  Sender: FDA-Public Use
  Company Number: None

PATIENT
  Age: 73 Year
  Sex: Male
  Weight: 74 kg

DRUGS (1)
  1. SODIUM CHLORIDE [Suspect]
     Dosage: 500 ML ONCE IV
     Route: 042
     Dates: start: 20100325, end: 20100325

REACTIONS (5)
  - HYPERCAPNIA [None]
  - PULMONARY OEDEMA [None]
  - RALES [None]
  - TACHYPNOEA [None]
  - WRONG DRUG ADMINISTERED [None]
